FAERS Safety Report 15306037 (Version 2)
Quarter: 2018Q3

REPORT INFORMATION
  Report Type: Spontaneous
  Country: IL (occurrence: IL)
  Receive Date: 20180822
  Receipt Date: 20180904
  Transmission Date: 20181010
  Serious: Yes (Other)
  Sender: FDA-Public Use
  Company Number: IL-ABBVIE-18K-082-2455072-00

PATIENT
  Age: 61 Year
  Sex: Female

DRUGS (3)
  1. MAVIRET [Suspect]
     Active Substance: GLECAPREVIR\PIBRENTASVIR
     Indication: CHRONIC HEPATITIS C
     Dosage: THREE TABLETS DAILY FOR EIGHT WEEKS
     Route: 048
     Dates: start: 20180725
  2. ESTO [Concomitant]
     Indication: PRODUCT USED FOR UNKNOWN INDICATION
  3. TAMBOCOR [Concomitant]
     Active Substance: FLECAINIDE ACETATE
     Indication: PRODUCT USED FOR UNKNOWN INDICATION

REACTIONS (7)
  - Skin mass [Recovering/Resolving]
  - Drug eruption [Unknown]
  - Pruritus [Recovering/Resolving]
  - Subacute cutaneous lupus erythematosus [Unknown]
  - Systemic lupus erythematosus [Unknown]
  - Rash [Recovering/Resolving]
  - Skin lesion [Recovering/Resolving]

NARRATIVE: CASE EVENT DATE: 201808
